FAERS Safety Report 4583871-8 (Version None)
Quarter: 2005Q1

REPORT INFORMATION
  Report Type: 
  Country: None (occurrence: None)
  Receive Date: 20050211
  Receipt Date: 20011130
  Transmission Date: 20050727
  Serious: Yes (Life-Threatening, Hospitalization)
  Sender: FDA-Public Use
  Company Number: 05USA0036

PATIENT
  Age: 59 Year
  Sex: Male

DRUGS (6)
  1. AGGRASTAT [Suspect]
     Indication: ACUTE CORONARY SYNDROME
     Dates: start: 20000708, end: 20000710
  2. HEPARIN [Suspect]
     Indication: ACUTE CORONARY SYNDROME
     Dates: start: 20000707, end: 20000710
  3. (PLACEBO) (TABLETS) [Concomitant]
  4. ASPIRIN [Concomitant]
  5. MAALOX (MAALOX) [Concomitant]
  6. SIMVASTATIN (SIMVASTATIN) (TABLETS) [Concomitant]

REACTIONS (4)
  - GASTROINTESTINAL HAEMORRHAGE [None]
  - HAEMATEMESIS [None]
  - MELAENA [None]
  - SYNCOPE [None]
